FAERS Safety Report 7546582-2 (Version None)
Quarter: 2011Q2

REPORT INFORMATION
  Report Type: 
  Country: None (occurrence: None)
  Receive Date: 20110607
  Receipt Date: 20110523
  Transmission Date: 20111010
  Serious: Yes (Hospitalization)
  Sender: FDA-Public Use
  Company Number: 2011MA006339

PATIENT
  Age: 87 Year
  Sex: Male

DRUGS (1)
  1. HYDROCHLOROTHIAZIDE [Suspect]
     Indication: OEDEMA PERIPHERAL
     Dosage: 50 MG; QD

REACTIONS (5)
  - BLOOD SODIUM DECREASED [None]
  - OEDEMA PERIPHERAL [None]
  - NAUSEA [None]
  - BLOOD ELECTROLYTES ABNORMAL [None]
  - LOSS OF CONSCIOUSNESS [None]
